FAERS Safety Report 5852915-5 (Version None)
Quarter: 2008Q3

REPORT INFORMATION
  Report Type: 
  Country: None (occurrence: None)
  Receive Date: 20080821
  Receipt Date: 20080818
  Transmission Date: 20090109
  Serious: Yes (Hospitalization, Other)
  Sender: FDA-Public Use
  Company Number: A0738631A

PATIENT
  Age: 59 Year
  Sex: Female

DRUGS (2)
  1. BEXXAR [Suspect]
     Indication: NON-HODGKIN'S LYMPHOMA
     Dosage: 81.3MG VARIABLE DOSE
     Route: 042
     Dates: start: 20080625
  2. LIPITOR [Concomitant]

REACTIONS (7)
  - ARTHRALGIA [None]
  - COMPLEMENT FACTOR DECREASED [None]
  - INFLUENZA LIKE ILLNESS [None]
  - MYALGIA [None]
  - PYREXIA [None]
  - RASH MORBILLIFORM [None]
  - SERUM SICKNESS [None]
